FAERS Safety Report 20700159 (Version 1)
Quarter: 2022Q2

REPORT INFORMATION
  Report Type: Spontaneous
  Country: US (occurrence: None)
  Receive Date: 20220411
  Receipt Date: 20220411
  Transmission Date: 20220720
  Serious: No
  Sender: FDA-Public Use
  Company Number: None

PATIENT
  Sex: Female

DRUGS (1)
  1. IMATINIB MESYLATE [Suspect]
     Active Substance: IMATINIB MESYLATE
     Indication: Diffuse cutaneous mastocytosis
     Dosage: FREQUENCY : DAILY;?
     Route: 048
     Dates: start: 20220302

REACTIONS (4)
  - Hypersensitivity [None]
  - Swelling [None]
  - Blood pressure increased [None]
  - Hepatic enzyme increased [None]
